FAERS Safety Report 16641965 (Version 1)
Quarter: 2019Q3

REPORT INFORMATION
  Report Type: Spontaneous
  Country: IT (occurrence: IT)
  Receive Date: 20190729
  Receipt Date: 20190729
  Transmission Date: 20191004
  Serious: Yes (Hospitalization, Other)
  Sender: FDA-Public Use
  Company Number: IT-TEVA-2019-IT-1083942

PATIENT
  Age: 67 Year
  Sex: Female

DRUGS (5)
  1. PREDNISONE. [Suspect]
     Active Substance: PREDNISONE
     Indication: GRANULOMATOSIS WITH POLYANGIITIS
     Dosage: TAPERING OFF REGIMEN
     Route: 065
  2. VITAMIN-B12 [Concomitant]
     Dosage: SUPPLEMENTATION THERAPY
     Route: 065
  3. CYCLOPHOSPHAMIDE. [Suspect]
     Active Substance: CYCLOPHOSPHAMIDE
     Indication: GRANULOMATOSIS WITH POLYANGIITIS
     Route: 065
  4. INSULIN [Concomitant]
     Active Substance: INSULIN NOS
     Indication: DIABETES MELLITUS
     Route: 065
  5. FOLATE [Concomitant]
     Active Substance: FOLATE SODIUM
     Dosage: SUPPLEMENTATION THERAPY
     Route: 065

REACTIONS (6)
  - Dysphoria [Unknown]
  - Respiratory failure [Recovered/Resolved]
  - Epstein-Barr virus infection [Recovered/Resolved]
  - Pneumonia viral [Recovered/Resolved]
  - Diabetes mellitus [Recovering/Resolving]
  - Herpes virus infection [Unknown]
